FAERS Safety Report 19823561 (Version 1)
Quarter: 2021Q3

REPORT INFORMATION
  Report Type: Other
  Country: JP (occurrence: JP)
  Receive Date: 20210913
  Receipt Date: 20210913
  Transmission Date: 20211014
  Serious: Yes (Other)
  Sender: FDA-Public Use
  Company Number: JP-ROCHE-2905384

PATIENT

DRUGS (14)
  1. PACLITAXEL. [Suspect]
     Active Substance: PACLITAXEL
     Indication: NEOPLASM MALIGNANT
     Route: 065
  2. ETOPOSIDE. [Suspect]
     Active Substance: ETOPOSIDE
     Indication: NEOPLASM MALIGNANT
     Route: 065
  3. VINORELBINE [Suspect]
     Active Substance: VINORELBINE TARTRATE
     Indication: NEOPLASM MALIGNANT
     Route: 065
  4. IRINOTECAN [Suspect]
     Active Substance: IRINOTECAN
     Indication: NEOPLASM MALIGNANT
     Route: 065
  5. BEVACIZUMAB. [Suspect]
     Active Substance: BEVACIZUMAB
     Indication: NEOPLASM MALIGNANT
     Route: 065
  6. NOGITECAN HYDROCHLORIDE [Suspect]
     Active Substance: TOPOTECAN HYDROCHLORIDE
     Indication: NEOPLASM MALIGNANT
     Route: 065
  7. GEMCITABINE. [Suspect]
     Active Substance: GEMCITABINE
     Indication: NEOPLASM MALIGNANT
     Route: 065
  8. DOCETAXEL. [Suspect]
     Active Substance: DOCETAXEL
     Indication: NEOPLASM MALIGNANT
     Route: 065
  9. PEMETREXED. [Suspect]
     Active Substance: PEMETREXED
     Indication: NEOPLASM MALIGNANT
     Route: 065
  10. CISPLATIN. [Suspect]
     Active Substance: CISPLATIN
     Indication: NEOPLASM MALIGNANT
     Route: 065
  11. CARBOPLATIN. [Suspect]
     Active Substance: CARBOPLATIN
     Indication: NEOPLASM MALIGNANT
     Route: 065
  12. TEGAFUR [Suspect]
     Active Substance: TEGAFUR
     Indication: NEOPLASM MALIGNANT
     Route: 065
  13. GIMERACIL [Suspect]
     Active Substance: GIMERACIL
     Indication: NEOPLASM MALIGNANT
     Route: 065
  14. OTERACIL [Suspect]
     Active Substance: OTERACIL
     Indication: NEOPLASM MALIGNANT
     Route: 065

REACTIONS (18)
  - Neutropenia [Unknown]
  - Thrombocytopenia [Unknown]
  - Anaemia [Unknown]
  - Constipation [Unknown]
  - Stomatitis [Unknown]
  - Diarrhoea [Unknown]
  - Hepatic function abnormal [Unknown]
  - Oesophagitis [Unknown]
  - Hyperglycaemia [Unknown]
  - Neuropathy peripheral [Unknown]
  - Renal impairment [Unknown]
  - Myalgia [Unknown]
  - Dysgeusia [Unknown]
  - Malaise [Unknown]
  - Decreased appetite [Unknown]
  - Arthralgia [Unknown]
  - Pain [Unknown]
  - Hiccups [Unknown]
